FAERS Safety Report 16120134 (Version 1)
Quarter: 2019Q1

REPORT INFORMATION
  Report Type: Report from Study
  Country: MX (occurrence: MX)
  Receive Date: 20190326
  Receipt Date: 20190326
  Transmission Date: 20190418
  Serious: Yes (Other)
  Sender: FDA-Public Use
  Company Number: PHHY2019MX067851

PATIENT
  Age: 74 Year
  Sex: Male
  Weight: 59 kg

DRUGS (15)
  1. EXITEN [Concomitant]
     Indication: RENAL DISORDER
     Dosage: UNK UNK, QW (STARTED APPROXIMATELY FIVE YEARS AGO)
     Route: 030
  2. AMIODARONE [Concomitant]
     Active Substance: AMIODARONE
     Indication: CARDIAC DISORDER
     Dosage: 1 DF (200 MG), QD (STARTED APPROXIMATELY FIVE YEARS AGO)
     Route: 048
  3. UNIVAL [Concomitant]
     Indication: PROPHYLAXIS
     Dosage: 1 DF (1 GM), TID
     Route: 048
     Dates: start: 201811
  4. ELATEC [Concomitant]
     Indication: ANTICOAGULANT THERAPY
     Dosage: 1 DF (1000 MG), QD (STARTED APPROXIMATELY 3 YEARS AGO)
     Route: 048
  5. PROVIRON [Concomitant]
     Indication: RENAL DISORDER
     Dosage: 1 DF(25 MG), QD (STARTED APPROXIMATELY ONE YEAR AGO)
     Route: 048
  6. FOLIC ACID. [Concomitant]
     Active Substance: FOLIC ACID
     Indication: PRODUCT USED FOR UNKNOWN INDICATION
     Dosage: 0.5 DF (5 MG), QD (APPROXIMATELY 3 YEARS AGO)
     Route: 048
  7. ELIQUIS [Concomitant]
     Active Substance: APIXABAN
     Indication: ANTICOAGULANT THERAPY
     Dosage: 0.5 DF (5 MG), BID (APPROXIMATELY 3 YEARS AGO)
     Route: 048
  8. SERMION [Concomitant]
     Active Substance: NICERGOLINE
     Indication: HEAD DISCOMFORT
     Dosage: 1 DF (10 MG), Q24H (STARTED APPROXIMATELY FIVE YEARS)
     Route: 048
  9. ENTRESTO [Suspect]
     Active Substance: SACUBITRIL\VALSARTAN
     Indication: CARDIAC DISORDER
     Dosage: UNK UNK, BID (ONE TABLET IN THE MORNING AND HALF TABLET AT NIGHT)
     Route: 048
  10. LASIX [Concomitant]
     Active Substance: FUROSEMIDE
     Indication: INFLAMMATION
     Dosage: 1 DF (40 MG), BID
     Route: 048
  11. INSPRA [Concomitant]
     Active Substance: EPLERENONE
     Indication: PRODUCT USED FOR UNKNOWN INDICATION
     Dosage: 1 DF (25 MG), QD (APPROXIMATELY 3 YEARS AGO)
     Route: 048
  12. RIOPAN [Concomitant]
     Indication: PROPHYLAXIS
     Dosage: 1 DF (10 ML (100 ML)), BID (SINCE A LONG TIME AGO)
     Route: 048
  13. CLOPIDOGREL [Suspect]
     Active Substance: CLOPIDOGREL BISULFATE
     Indication: PRODUCT USED FOR UNKNOWN INDICATION
     Dosage: 1 DF (75 MG), Q24H
     Route: 048
  14. KARET [Concomitant]
     Indication: THYROID DISORDER
     Dosage: 1 DF (1000 MG), UNK
     Route: 048
  15. AUTRIN [Concomitant]
     Indication: ANAEMIA
     Dosage: 1 DF(600 MG), Q48H (STARTED APPROXIMATELY THREE YEARS AGO)
     Route: 048

REACTIONS (4)
  - Wrong technique in product usage process [Unknown]
  - Product use in unapproved indication [Unknown]
  - Prescribed underdose [Unknown]
  - Deafness [Not Recovered/Not Resolved]

NARRATIVE: CASE EVENT DATE: 201811
